FAERS Safety Report 25130131 (Version 1)
Quarter: 2025Q1

REPORT INFORMATION
  Report Type: Spontaneous
  Country: US (occurrence: US)
  Receive Date: 20250327
  Receipt Date: 20250327
  Transmission Date: 20250409
  Serious: Yes (Other)
  Sender: PFIZER
  Company Number: US-PFIZER INC-202500062095

PATIENT
  Age: 85 Year
  Sex: Female

DRUGS (1)
  1. BRAFTOVI [Suspect]
     Active Substance: ENCORAFENIB
     Dosage: 300 MG, 1X/DAY (TAKE 4 CAPSULES BY MOUTH ONCE DAILY WITH OR W/O FOOD)
     Route: 048

REACTIONS (1)
  - Clostridium difficile colitis [Unknown]
